FAERS Safety Report 9320116 (Version 1)
Quarter: 2013Q2

REPORT INFORMATION
  Report Type: Spontaneous
  Country: US (occurrence: US)
  Receive Date: 20130530
  Receipt Date: 20130530
  Transmission Date: 20140414
  Serious: No
  Sender: FDA-Public Use
  Company Number: US-UPSHER-SMITH LABORATORIES, INC.-12003054

PATIENT
  Age: 73 Year
  Sex: Male

DRUGS (6)
  1. KLOR-CON [Suspect]
     Indication: BLOOD POTASSIUM DECREASED
     Dosage: 10 MEQ, QD
     Route: 048
     Dates: start: 200909, end: 201209
  2. KLOR-CON [Suspect]
     Dosage: 10 MEQ, BID
     Route: 048
     Dates: start: 201210, end: 201210
  3. KLOR-CON [Suspect]
     Dosage: 10 MEQ, TID
     Route: 048
     Dates: start: 201210
  4. MAXZIDE [Concomitant]
     Indication: HYPERTENSION
     Dosage: UNK
     Dates: start: 2002
  5. ZOCOR [Concomitant]
     Indication: BLOOD CHOLESTEROL INCREASED
     Dosage: UNK
     Dates: start: 2004
  6. FLOMAX                             /01280302/ [Concomitant]
     Dosage: UNK

REACTIONS (2)
  - Drug ineffective [Recovering/Resolving]
  - Medication residue present [Not Recovered/Not Resolved]
